FAERS Safety Report 16458394 (Version 6)
Quarter: 2021Q2

REPORT INFORMATION
  Report Type: Spontaneous
  Country: CA (occurrence: CA)
  Receive Date: 20190620
  Receipt Date: 20210527
  Transmission Date: 20210716
  Serious: Yes (Death, Hospitalization, Other)
  Sender: FDA-Public Use
  Company Number: CA-PFIZER INC-2019126037

PATIENT
  Age: 77 Year
  Sex: Male
  Weight: 81.63 kg

DRUGS (6)
  1. ALLOPURINOL. [Suspect]
     Active Substance: ALLOPURINOL
     Dosage: UNK
  2. MEVACOR [Concomitant]
     Active Substance: LOVASTATIN
     Dosage: UNK
  3. SPIRIVA [Concomitant]
     Active Substance: TIOTROPIUM BROMIDE MONOHYDRATE
     Dosage: UNK
  4. REVATIO [Suspect]
     Active Substance: SILDENAFIL CITRATE
     Indication: PULMONARY HYPERTENSION
     Dosage: 20 MG, THREE TIMES A DAY
     Route: 048
     Dates: start: 20190318
  5. ASAPHEN [Concomitant]
     Active Substance: ASPIRIN
     Dosage: UNK
  6. OXYGEN. [Concomitant]
     Active Substance: OXYGEN
     Dosage: 2 LITERS 24/24

REACTIONS (8)
  - Arrhythmia [Unknown]
  - Erythema [Unknown]
  - Lip swelling [Unknown]
  - Death [Fatal]
  - Rash [Unknown]
  - Clostridium difficile infection [Unknown]
  - Lung neoplasm malignant [Not Recovered/Not Resolved]
  - Headache [Recovered/Resolved]

NARRATIVE: CASE EVENT DATE: 20190318
